FAERS Safety Report 6025451-3 (Version None)
Quarter: 2008Q4

REPORT INFORMATION
  Report Type: 
  Country: None (occurrence: None)
  Receive Date: 20081231
  Receipt Date: 20081224
  Transmission Date: 20090506
  Serious: Yes (Other)
  Sender: FDA-Public Use
  Company Number: US-JNJCH-2008058283

PATIENT
  Age: 22 Year
  Sex: Male
  Weight: 72.6 kg

DRUGS (1)
  1. DRAMAMINE [Suspect]
     Indication: NAUSEA
     Dosage: TEXT:2 TABLETS ONCE
     Route: 048
     Dates: start: 20081224, end: 20081224

REACTIONS (1)
  - CONVULSION [None]
